FAERS Safety Report 6912340-2 (Version None)
Quarter: 2010Q3

REPORT INFORMATION
  Report Type: 
  Country: None (occurrence: None)
  Receive Date: 20100806
  Receipt Date: 20100802
  Transmission Date: 20110219
  Serious: Yes (Hospitalization)
  Sender: FDA-Public Use
  Company Number: FR-MERCK-1008FRA00017

PATIENT
  Age: 66 Year
  Sex: Female

DRUGS (2)
  1. JANUMET [Suspect]
     Indication: TYPE 2 DIABETES MELLITUS
     Route: 048
     Dates: start: 20100401
  2. METFORMIN PAMOATE [Suspect]
     Indication: TYPE 2 DIABETES MELLITUS
     Route: 048
     Dates: end: 20100615

REACTIONS (2)
  - ABDOMINAL PAIN [None]
  - DIARRHOEA [None]
